FAERS Safety Report 5393367-1 (Version None)
Quarter: 2007Q3

REPORT INFORMATION
  Report Type: 
  Country: None (occurrence: None)
  Receive Date: 20070718
  Receipt Date: 20070718
  Transmission Date: 20080115
  Serious: Yes (Hospitalization)
  Sender: FDA-Public Use
  Company Number: None

PATIENT
  Sex: Male

DRUGS (1)
  1. FONDAPARINUX SODIUM -ARIXTRA- 7.5 MG /0.6 ML GSK [Suspect]
     Indication: DEEP VEIN THROMBOSIS
     Dosage: 7.5MG DAILY SQ
     Route: 058
     Dates: start: 20070627

REACTIONS (1)
  - GASTRITIS [None]
